FAERS Safety Report 25469103 (Version 1)
Quarter: 2025Q2

REPORT INFORMATION
  Report Type: Spontaneous
  Country: JO (occurrence: US)
  Receive Date: 20250623
  Receipt Date: 20250623
  Transmission Date: 20250717
  Serious: Yes (Other)
  Sender: ORGANON
  Company Number: US-MLMSERVICE-20250604-PI533366-00298-1

PATIENT
  Age: 57 Year
  Sex: Female

DRUGS (3)
  1. ZOCOR [Interacting]
     Active Substance: SIMVASTATIN
     Indication: Hyperlipidaemia
  2. AMIODARONE [Interacting]
     Active Substance: AMIODARONE
     Indication: Atrial fibrillation
  3. WARFARIN [Concomitant]
     Active Substance: WARFARIN

REACTIONS (2)
  - Rhabdomyolysis [Recovered/Resolved]
  - Drug interaction [Recovered/Resolved]
